FAERS Safety Report 12662535 (Version 1)
Quarter: 2016Q3

REPORT INFORMATION
  Report Type: Spontaneous
  Country: BR (occurrence: BR)
  Receive Date: 20160818
  Receipt Date: 20160818
  Transmission Date: 20161109
  Serious: Yes (Hospitalization, Other)
  Sender: FDA-Public Use
  Company Number: BR-BRISTOL-MYERS SQUIBB COMPANY-BMS-2016-066175

PATIENT
  Sex: Female
  Weight: 50 kg

DRUGS (2)
  1. FOLIC ACID. [Concomitant]
     Active Substance: FOLIC ACID
     Indication: PRODUCT USED FOR UNKNOWN INDICATION
     Dosage: 5 MG, QD
     Route: 065
  2. HYDREA [Suspect]
     Active Substance: HYDROXYUREA
     Indication: SICKLE CELL ANAEMIA
     Dosage: UNK UNK, BID
     Route: 048
     Dates: start: 2008

REACTIONS (7)
  - Chest pain [Unknown]
  - Haemoglobin decreased [Unknown]
  - Pneumonia [Unknown]
  - Drug dose omission [Unknown]
  - Blood lactate dehydrogenase increased [Unknown]
  - Bone infarction [Unknown]
  - Pain [Unknown]
